FAERS Safety Report 8255975-X (Version None)
Quarter: 2012Q2

REPORT INFORMATION
  Report Type: 
  Country: None (occurrence: None)
  Receive Date: 20120403
  Receipt Date: 20120319
  Transmission Date: 20120825
  Serious: Yes (Other)
  Sender: FDA-Public Use
  Company Number: IT-ROCHE-1050933

PATIENT

DRUGS (2)
  1. PEGINTERFERON ALFA-2A [Suspect]
     Indication: HEPATITIS C
  2. COPEGUS [Suspect]
     Indication: HEPATITIS C

REACTIONS (4)
  - HEPATIC NEOPLASM MALIGNANT [None]
  - ENCEPHALOPATHY [None]
  - ANAEMIA [None]
  - NEUTROPENIA [None]
